FAERS Safety Report 18213681 (Version 1)
Quarter: 2020Q3

REPORT INFORMATION
  Report Type: Spontaneous
  Country: US (occurrence: US)
  Receive Date: 20200831
  Receipt Date: 20200831
  Transmission Date: 20201103
  Serious: No
  Sender: FDA-Public Use
  Company Number: None

PATIENT
  Age: 96 Year
  Sex: Female
  Weight: 42.75 kg

DRUGS (8)
  1. LETROZOLE 2.5MG [Concomitant]
     Active Substance: LETROZOLE
  2. CALTRATE + D 600MG [Concomitant]
  3. IBRANCE [Suspect]
     Active Substance: PALBOCICLIB
     Indication: BREAST CANCER
     Route: 048
     Dates: start: 20200625
  4. VERAPAMIL ER 120MG [Concomitant]
  5. PRAVASTATIN. [Concomitant]
     Active Substance: PRAVASTATIN
  6. WARFARIN 1MG [Concomitant]
  7. TIMOLOL 10MG [Concomitant]
  8. ATENOLOL 50MG [Concomitant]
     Active Substance: ATENOLOL

REACTIONS (2)
  - Gait disturbance [None]
  - Dizziness [None]

NARRATIVE: CASE EVENT DATE: 20200829
